FAERS Safety Report 7623176 (Version 6)
Quarter: 2012Q4

REPORT INFORMATION
  Report Type: 
  Country: US (occurrence: US)
  Receive Date: 20101011
  Receipt Date: 20121019
  Transmission Date: 20130627
  Serious: Yes (Other)
  Sender: FDA-Public Use
  Company Number: US-BIOGENIDEC-2010BI032801

PATIENT
  Age: 24 Year
  Sex: Female

DRUGS (5)
  1. AVONEX [Suspect]
     Indication: MULTIPLE SCLEROSIS
     Route: 030
     Dates: start: 20100401, end: 201004
  2. AVONEX [Suspect]
     Indication: MULTIPLE SCLEROSIS
     Route: 030
     Dates: start: 20100405, end: 2010
  3. AVONEX [Suspect]
     Indication: MULTIPLE SCLEROSIS
     Route: 030
     Dates: start: 20100730
  4. BACLOFEN [Concomitant]
  5. MEDICATION (NOS) [Concomitant]
     Indication: EPILEPSY

REACTIONS (10)
  - Anxiety [Not Recovered/Not Resolved]
  - Convulsion [Recovered/Resolved]
  - Back pain [Not Recovered/Not Resolved]
  - Mental disorder [Unknown]
  - Discomfort [Unknown]
  - Abdominal pain [Recovered/Resolved]
  - Muscle spasms [Not Recovered/Not Resolved]
  - Headache [Recovered/Resolved]
  - Nausea [Recovered/Resolved]
  - Fatigue [Recovered/Resolved]
